FAERS Safety Report 8263991-7 (Version None)
Quarter: 2012Q2

REPORT INFORMATION
  Report Type: 
  Country: None (occurrence: None)
  Receive Date: 20120406
  Receipt Date: 20090728
  Transmission Date: 20120825
  Serious: No
  Sender: FDA-Public Use
  Company Number: 2009BI023614

PATIENT
  Sex: Female

DRUGS (2)
  1. TYSABRI [Suspect]
     Indication: MULTIPLE SCLEROSIS
     Route: 042
  2. TYSABRI [Suspect]
     Route: 042
     Dates: start: 20071026, end: 20120124

REACTIONS (9)
  - NAUSEA [None]
  - GALLBLADDER OPERATION [None]
  - BLOOD PRESSURE INCREASED [None]
  - RASH [None]
  - URINARY TRACT INFECTION [None]
  - GALLBLADDER DISORDER [None]
  - BLOOD CHOLESTEROL INCREASED [None]
  - SINUSITIS [None]
  - FLUSHING [None]
